FAERS Safety Report 4900382-8 (Version None)
Quarter: 2006Q1

REPORT INFORMATION
  Report Type: 
  Country: None (occurrence: None)
  Receive Date: 20060202
  Receipt Date: 20060118
  Transmission Date: 20060701
  Serious: No
  Sender: FDA-Public Use
  Company Number: US200601003244

PATIENT
  Age: 57 Year
  Sex: Female

DRUGS (10)
  1. CYMBALTA [Suspect]
     Indication: DEPRESSION
     Dosage: 60 MG, 2/D, ORAL
     Route: 048
     Dates: start: 20050801
  2. COPAXONE [Concomitant]
  3. CLONAZEPAM [Concomitant]
  4. TEMAZEPAM [Concomitant]
  5. LABETALOL HCL [Concomitant]
  6. HYDROCODONE BITARTRATE [Concomitant]
  7. GABAPENTIN [Concomitant]
  8. LEXAPRO [Concomitant]
  9. LASIX (FUROSEMIDE, FUROSEMIDE SODIUM) [Concomitant]
  10. PREVACID [Concomitant]

REACTIONS (1)
  - HEPATIC ENZYME INCREASED [None]
